FAERS Safety Report 5560788-3 (Version None)
Quarter: 2007Q4

REPORT INFORMATION
  Report Type: 
  Country: None (occurrence: None)
  Receive Date: 20071215
  Receipt Date: 20071120
  Transmission Date: 20080405
  Serious: No
  Sender: FDA-Public Use
  Company Number: US-ABBOTT-07P-163-0425919-00

PATIENT
  Sex: Male
  Weight: 77.18 kg

DRUGS (6)
  1. HUMIRA [Suspect]
     Indication: CROHN'S DISEASE
     Route: 058
     Dates: start: 20070917
  2. AZATHIOPRINE [Concomitant]
     Indication: CROHN'S DISEASE
     Route: 048
  3. BUDESONIDE [Concomitant]
     Indication: CROHN'S DISEASE
     Route: 048
  4. VITAMIN B12 NOS [Concomitant]
     Indication: VITAMIN SUPPLEMENTATION
     Route: 030
  5. ESOMEPRAZOLE MAGNESIUM [Concomitant]
     Indication: GASTROOESOPHAGEAL REFLUX DISEASE
     Route: 048
  6. FEXOFENADINE [Concomitant]
     Indication: SEASONAL ALLERGY
     Route: 048

REACTIONS (2)
  - DYSPNOEA EXERTIONAL [None]
  - FATIGUE [None]
